FAERS Safety Report 23312744 (Version 1)
Quarter: 2023Q4

REPORT INFORMATION
  Report Type: Report from Study
  Country: GB (occurrence: GB)
  Receive Date: 20231219
  Receipt Date: 20231219
  Transmission Date: 20240109
  Serious: Yes (Other)
  Sender: FDA-Public Use
  Company Number: GB-JNJFOC-20231245378

PATIENT
  Sex: Male

DRUGS (3)
  1. STELARA [Suspect]
     Active Substance: USTEKINUMAB
     Indication: Psoriasis
     Route: 058
     Dates: start: 20211119
  2. STELARA [Suspect]
     Active Substance: USTEKINUMAB
  3. MORPHINE [Concomitant]
     Active Substance: MORPHINE

REACTIONS (4)
  - Arthritis reactive [Unknown]
  - Psoriasis [Unknown]
  - Product temperature excursion issue [Unknown]
  - Therapeutic response decreased [Unknown]
